FAERS Safety Report 6018388-7 (Version None)
Quarter: 2008Q4

REPORT INFORMATION
  Report Type: 
  Country: None (occurrence: None)
  Receive Date: 20081223
  Receipt Date: 20081216
  Transmission Date: 20090506
  Serious: Yes (Other)
  Sender: FDA-Public Use
  Company Number: US-AMGEN-QUU324178

PATIENT
  Sex: Female

DRUGS (5)
  1. ENBREL [Suspect]
     Indication: RHEUMATOID ARTHRITIS
     Dates: start: 20081001
  2. CALCIUM [Concomitant]
  3. POTASSIUM CHLORIDE [Concomitant]
  4. AVALIDE [Concomitant]
  5. SYNTHROID [Concomitant]

REACTIONS (1)
  - HEPATIC FIBROSIS [None]
